FAERS Safety Report 8602205-2 (Version None)
Quarter: 2012Q3

REPORT INFORMATION
  Report Type: 
  Country: None (occurrence: None)
  Receive Date: 20120817
  Receipt Date: 20120809
  Transmission Date: 20120928
  Serious: Yes (Other)
  Sender: FDA-Public Use
  Company Number: NZ-PFIZER INC-2012121833

PATIENT
  Age: 15 Month
  Sex: Female
  Weight: 8.6 kg

DRUGS (4)
  1. GENOTROPIN [Suspect]
     Indication: GROWTH RETARDATION
  2. LEVOTHYROXINE SODIUM [Concomitant]
     Dosage: 0.25 ML, 1X/DAY
     Route: 048
     Dates: start: 20120613
  3. HYDROCORTISONE [Concomitant]
     Dosage: 1.4 ML, 3X/DAY
     Route: 048
     Dates: start: 20110122
  4. GENOTROPIN [Suspect]
     Indication: HYPOPITUITARISM
     Dosage: 0.4 MG, 1X/DAY
     Route: 058
     Dates: start: 20120514

REACTIONS (3)
  - IRRITABILITY [None]
  - VOMITING [None]
  - HEADACHE [None]
